FAERS Safety Report 20305527 (Version 1)
Quarter: 2022Q1

REPORT INFORMATION
  Report Type: Spontaneous
  Country: TR (occurrence: TR)
  Receive Date: 20220106
  Receipt Date: 20220106
  Transmission Date: 20220423
  Serious: Yes (Hospitalization, Other)
  Sender: FDA-Public Use
  Company Number: TR-MLMSERVICE-20211221-3280380-1

PATIENT
  Age: 45 Year
  Sex: Male

DRUGS (3)
  1. LANSOPRAZOLE [Suspect]
     Active Substance: LANSOPRAZOLE
     Indication: Helicobacter gastritis
     Dosage: 30 MG, QD
     Route: 048
  2. CLARITHROMYCIN [Suspect]
     Active Substance: CLARITHROMYCIN
     Indication: Helicobacter gastritis
     Dosage: 500 MG, BID
     Route: 065
  3. AMOXICILLIN [Suspect]
     Active Substance: AMOXICILLIN
     Indication: Helicobacter gastritis
     Dosage: 1 G, BID
     Route: 065

REACTIONS (1)
  - Psychotic disorder [Recovered/Resolved]
